FAERS Safety Report 6023697-1 (Version None)
Quarter: 2008Q4

REPORT INFORMATION
  Report Type: 
  Country: None (occurrence: None)
  Receive Date: 20081230
  Receipt Date: 20081222
  Transmission Date: 20090506
  Serious: Yes (Hospitalization)
  Sender: FDA-Public Use
  Company Number: US-GILEAD-2008-0019491

PATIENT
  Sex: Female
  Weight: 73.094 kg

DRUGS (2)
  1. LETAIRIS [Suspect]
     Indication: PULMONARY ARTERIAL HYPERTENSION
     Route: 048
     Dates: start: 20081118, end: 20081205
  2. ORAL DIURETICS [Concomitant]

REACTIONS (2)
  - FLUID RETENTION [None]
  - PULMONARY OEDEMA [None]
